FAERS Safety Report 13213708 (Version 1)
Quarter: 2017Q1

REPORT INFORMATION
  Report Type: Report from Study
  Country: CA (occurrence: CA)
  Receive Date: 20170210
  Receipt Date: 20170210
  Transmission Date: 20170428
  Serious: Yes (Other)
  Sender: FDA-Public Use
  Company Number: CA-MYLANLABS-2017M1008125

PATIENT

DRUGS (4)
  1. CISPLATIN. [Suspect]
     Active Substance: CISPLATIN
     Indication: NEOPLASM MALIGNANT
     Dosage: 75 MG/M2; ON DAY 1 OF EACH 3 WEEK CYCLE
     Route: 042
  2. PEMETREXED [Suspect]
     Active Substance: PEMETREXED
     Indication: NEOPLASM MALIGNANT
     Dosage: 500 MG/M2; ON DAY 1 OF EACH 3 WEEK CYCLE
     Route: 042
  3. AFLIBERCEPT [Suspect]
     Active Substance: AFLIBERCEPT
     Indication: NEOPLASM MALIGNANT
     Dosage: 2 MG/KG; ADMINISTERED OVER 1 HOUR ON DAY 1 OF EACH 3 WEEK CYCLE
     Route: 042
  4. CYANOCOBALAMIN. [Concomitant]
     Active Substance: CYANOCOBALAMIN
     Indication: PRODUCT USED FOR UNKNOWN INDICATION
     Dosage: 1000 MCG; 1 WEEK BEFORE THE FIRST PEMETREXED DOSE AND EVERY THREE CYCLES THEREAFTER
     Route: 030

REACTIONS (1)
  - Pyrexia [Unknown]
